FAERS Safety Report 13927604 (Version 1)
Quarter: 2017Q3

REPORT INFORMATION
  Report Type: Spontaneous
  Country: US (occurrence: US)
  Receive Date: 20170831
  Receipt Date: 20170831
  Transmission Date: 20171127
  Serious: Yes (Other)
  Sender: FDA-Public Use
  Company Number: None

PATIENT
  Sex: Female
  Weight: 47.25 kg

DRUGS (6)
  1. OMEGA-3 ACIDS [Concomitant]
     Active Substance: OMEGA-3 FATTY ACIDS
  2. IBUPROFEN. [Suspect]
     Active Substance: IBUPROFEN
     Indication: PREMENSTRUAL PAIN
     Dosage: ?          QUANTITY:2 TABLET(S);?ORAL
     Route: 048
  3. MICROGESTIN [Concomitant]
     Active Substance: ETHINYL ESTRADIOL\NORETHINDRONE ACETATE
  4. QVAR [Concomitant]
     Active Substance: BECLOMETHASONE DIPROPIONATE
  5. PROAIR HFA [Concomitant]
     Active Substance: ALBUTEROL SULFATE
  6. CALCIUM W/ VITAMIN D [Concomitant]

REACTIONS (4)
  - Contraindicated product administered [None]
  - Hypopnoea [None]
  - Painful respiration [None]
  - Bronchospasm [None]

NARRATIVE: CASE EVENT DATE: 20141015
